FAERS Safety Report 5779130-8 (Version None)
Quarter: 2008Q2

REPORT INFORMATION
  Report Type: 
  Country: None (occurrence: None)
  Receive Date: 20080619
  Receipt Date: 20080610
  Transmission Date: 20081010
  Serious: Yes (Hospitalization)
  Sender: FDA-Public Use
  Company Number: IE-ABBOTT-08P-229-0442617-00

PATIENT
  Sex: Female
  Weight: 47 kg

DRUGS (4)
  1. HUMIRA [Suspect]
     Indication: CROHN'S DISEASE
     Route: 058
     Dates: start: 20080222, end: 20080307
  2. PREDNISOLONE [Concomitant]
     Indication: CROHN'S DISEASE
     Route: 048
     Dates: start: 20080212
  3. MESALAMINE [Concomitant]
     Indication: CROHN'S DISEASE
     Route: 048
     Dates: start: 20080212, end: 20080312
  4. ESOMEPRAZOLE MAGNESIUM [Concomitant]
     Indication: CROHN'S DISEASE
     Route: 048
     Dates: start: 20080212, end: 20080312

REACTIONS (6)
  - ABDOMINAL PAIN [None]
  - DIARRHOEA [None]
  - DISCOMFORT [None]
  - HYPOKALAEMIA [None]
  - MALAISE [None]
  - VOMITING [None]
